FAERS Safety Report 4644491-X (Version None)
Quarter: 2005Q2

REPORT INFORMATION
  Report Type: 
  Country: None (occurrence: None)
  Receive Date: 20050425
  Receipt Date: 20050425
  Transmission Date: 20051028
  Serious: Yes (Other)
  Sender: FDA-Public Use
  Company Number: None

PATIENT
  Age: 40 Year
  Sex: Female
  Weight: 57.6068 kg

DRUGS (1)
  1. ENBREL [Suspect]
     Indication: PSORIATIC ARTHROPATHY
     Dosage: 2R2 SQ 24 WKS
     Dates: start: 20040101

REACTIONS (3)
  - FALL [None]
  - SINUSITIS FUNGAL [None]
  - UPPER RESPIRATORY TRACT INFECTION [None]
